FAERS Safety Report 6880588-1 (Version None)
Quarter: 2010Q3

REPORT INFORMATION
  Report Type: 
  Country: None (occurrence: None)
  Receive Date: 20100727
  Receipt Date: 20090903
  Transmission Date: 20110219
  Serious: No
  Sender: FDA-Public Use
  Company Number: A0805795A

PATIENT
  Age: 48 Year
  Sex: Female

DRUGS (2)
  1. RANITIDINE [Suspect]
     Dosage: 150MG TWICE PER DAY
     Route: 048
     Dates: start: 20090829, end: 20090830
  2. NO CONCURRENT MEDICATION [Concomitant]

REACTIONS (5)
  - ABDOMINAL PAIN UPPER [None]
  - AGITATION [None]
  - CONFUSIONAL STATE [None]
  - NERVOUSNESS [None]
  - STRESS [None]
